FAERS Safety Report 8530934-8 (Version None)
Quarter: 2012Q3

REPORT INFORMATION
  Report Type: 
  Country: None (occurrence: None)
  Receive Date: 20120723
  Receipt Date: 20120716
  Transmission Date: 20120928
  Serious: Yes (Other)
  Sender: FDA-Public Use
  Company Number: AU-ROCHE-1090349

PATIENT
  Sex: Male

DRUGS (2)
  1. VISUDYNE [Suspect]
     Indication: AGE-RELATED MACULAR DEGENERATION
     Route: 042
  2. LUCENTIS [Suspect]
     Indication: AGE-RELATED MACULAR DEGENERATION
     Route: 050
     Dates: start: 20071001

REACTIONS (1)
  - VISUAL ACUITY REDUCED [None]
